FAERS Safety Report 6436703-7 (Version None)
Quarter: 2009Q4

REPORT INFORMATION
  Report Type: 
  Country: None (occurrence: None)
  Receive Date: 20091110
  Receipt Date: 20091110
  Transmission Date: 20100525
  Serious: Yes (Other)
  Sender: FDA-Public Use
  Company Number: None

PATIENT
  Sex: Female
  Weight: 74.8435 kg

DRUGS (1)
  1. TOVIAZ [Suspect]
     Indication: HYPERTONIC BLADDER
     Dosage: DAYS
     Dates: start: 20091104, end: 20091107

REACTIONS (4)
  - MUSCULOSKELETAL CHEST PAIN [None]
  - PAIN [None]
  - RASH [None]
  - SWELLING [None]
